FAERS Safety Report 17687105 (Version 1)
Quarter: 2020Q2

REPORT INFORMATION
  Report Type: Spontaneous
  Country: US (occurrence: US)
  Receive Date: 20200421
  Receipt Date: 20200421
  Transmission Date: 20200714
  Serious: Yes (Hospitalization)
  Sender: FDA-Public Use
  Company Number: US-ROCHE-2584302

PATIENT
  Age: 41 Year
  Sex: Male

DRUGS (1)
  1. PULMOZYME [Suspect]
     Active Substance: DORNASE ALFA
     Indication: PRODUCT USED FOR UNKNOWN INDICATION
     Dosage: STRENGTH: 1 MG/ML; DOSE 2.5 MG/2.5ML
     Route: 055
     Dates: start: 201009

REACTIONS (2)
  - Arthropathy [Unknown]
  - Lung disorder [Unknown]

NARRATIVE: CASE EVENT DATE: 20190312
